FAERS Safety Report 5762923-0 (Version None)
Quarter: 2008Q2

REPORT INFORMATION
  Report Type: 
  Country: None (occurrence: None)
  Receive Date: 20080604
  Receipt Date: 20080520
  Transmission Date: 20081010
  Serious: Yes (Hospitalization)
  Sender: FDA-Public Use
  Company Number: 2008BI012009

PATIENT
  Age: 59 Year
  Sex: Female
  Weight: 55.3388 kg

DRUGS (12)
  1. AVONEX [Suspect]
     Indication: MULTIPLE SCLEROSIS
     Dosage: 30 UG; QW; IM
     Route: 030
  2. BACLOFEN [Concomitant]
  3. LEVAQUIN [Concomitant]
  4. MESTINON [Concomitant]
  5. NEURONTIN [Concomitant]
  6. VYTORIN [Concomitant]
  7. CALCIUM WITH VITAMIN D [Concomitant]
  8. SYNTHROID [Concomitant]
  9. RYNATAN [Concomitant]
  10. PROVIGIL [Concomitant]
  11. ZANAFLEX [Concomitant]
  12. VALIUM [Concomitant]

REACTIONS (3)
  - GROIN PAIN [None]
  - HIP ARTHROPLASTY [None]
  - JOINT STIFFNESS [None]
